FAERS Safety Report 4728286-4 (Version None)
Quarter: 2005Q3

REPORT INFORMATION
  Report Type: 
  Country: None (occurrence: None)
  Receive Date: 20050727
  Receipt Date: 20050712
  Transmission Date: 20060218
  Serious: Yes (Hospitalization, Other)
  Sender: FDA-Public Use
  Company Number: 2005US000919

PATIENT
  Age: 65 Year
  Sex: Female

DRUGS (19)
  1. PROGRAF [Suspect]
     Indication: PROPHYLAXIS AGAINST TRANSPLANT REJECTION
     Dosage: 4.00 MG, BID, ORAL
     Route: 048
     Dates: start: 20050621
  2. MYCOPHENOLATE MOFETIL(MYCOPHENOLATE MOFETIL) [Suspect]
     Indication: PROPHYLAXIS AGAINST TRANSPLANT REJECTION
     Dosage: 1000.00 MG, BID, IV NOS  , 2000.00 MG, BID, ORAL
     Route: 042
     Dates: start: 20050621, end: 20050621
  3. MYCOPHENOLATE MOFETIL(MYCOPHENOLATE MOFETIL) [Suspect]
     Indication: PROPHYLAXIS AGAINST TRANSPLANT REJECTION
     Dosage: 1000.00 MG, BID, IV NOS  , 2000.00 MG, BID, ORAL
     Route: 042
     Dates: start: 20050627
  4. METHYLPREDNISOLONE [Suspect]
     Indication: PROPHYLAXIS AGAINST TRANSPLANT REJECTION
     Dosage: 500.00 MG, UID/QD, IV NOS
     Route: 042
     Dates: start: 20050621
  5. ANTITHYMOCYTE IMMUNOGLOBULIN(ANTITHYMOCYTE IMMUNOGLOBULIN) [Suspect]
     Indication: PROPHYLAXIS AGAINST TRANSPLANT REJECTION
     Dosage: 100.00 MG, UID/QD, IV NOS
     Route: 042
  6. AMLODIPINE [Concomitant]
  7. ACETAMINOPHEN [Concomitant]
  8. DIPHENHYDRAMINE HCL [Concomitant]
  9. DOCUSATE SODIUM [Concomitant]
  10. DOLASETRON MESILATE [Concomitant]
  11. HYDROMORPHONE [Concomitant]
  12. METOPROLOL [Concomitant]
  13. MORPHINE SULFATE [Concomitant]
  14. NYSTATIN [Concomitant]
  15. INSULIN [Concomitant]
  16. PANTOPRAZOLE [Concomitant]
  17. BLINDED SULFAMETHOXAZOLE W/TRIMETHOPRIM (SULFAMETHOXAZOLE, TRIMETHOPRI [Concomitant]
  18. VALGANCICLOVIR [Concomitant]
  19. REGLAN [Concomitant]

REACTIONS (6)
  - DECREASED APPETITE [None]
  - DEEP VEIN THROMBOSIS [None]
  - HAEMATOCRIT DECREASED [None]
  - HAEMORRHAGE [None]
  - ILIAC ARTERY THROMBOSIS [None]
  - NAUSEA [None]
